FAERS Safety Report 7382817-7 (Version None)
Quarter: 2011Q1

REPORT INFORMATION
  Report Type: 
  Country: None (occurrence: None)
  Receive Date: 20110330
  Receipt Date: 20110321
  Transmission Date: 20110831
  Serious: No
  Sender: FDA-Public Use
  Company Number: US-BIOGENIDEC-2011BI010671

PATIENT
  Sex: Male

DRUGS (1)
  1. AVONEX [Suspect]
     Indication: MULTIPLE SCLEROSIS
     Route: 030
     Dates: start: 20090614

REACTIONS (7)
  - IRRITABILITY [None]
  - SINUSITIS [None]
  - BACK PAIN [None]
  - POOR QUALITY SLEEP [None]
  - NIGHT SWEATS [None]
  - HEADACHE [None]
  - PAIN IN EXTREMITY [None]
